FAERS Safety Report 9789442 (Version 15)
Quarter: 2014Q3

REPORT INFORMATION
  Report Type: Spontaneous
  Country: US (occurrence: US)
  Receive Date: 20131231
  Receipt Date: 20140904
  Transmission Date: 20150326
  Serious: Yes (Other)
  Sender: FDA-Public Use
  Company Number: US-JNJFOC-20131211789

PATIENT
  Age: 43 Year
  Sex: Female
  Weight: 90.72 kg

DRUGS (9)
  1. WELLBUTRIN [Concomitant]
     Active Substance: BUPROPION HYDROCHLORIDE
  2. TYLENOL EXTRA STRENGTH [Suspect]
     Active Substance: ACETAMINOPHEN
     Route: 065
  3. TYLENOL EXTRA STRENGTH [Suspect]
     Active Substance: ACETAMINOPHEN
     Indication: TEMPOROMANDIBULAR JOINT SYNDROME
     Dosage: 2 TABLETS EVERY 3 TO 4 HOURS; 6-8 PER DAY
     Route: 065
     Dates: start: 20120322, end: 20120329
  4. TYLENOL PM [Suspect]
     Active Substance: ACETAMINOPHEN\DIPHENHYDRAMINE
     Indication: TEMPOROMANDIBULAR JOINT SYNDROME
     Dosage: AT NIGHT; 2 PER DAY
     Route: 065
     Dates: start: 20120322, end: 20120329
  5. DILANTIN [Concomitant]
     Active Substance: PHENYTOIN
  6. GABAPENTIN. [Concomitant]
     Active Substance: GABAPENTIN
  7. TRAMADOL [Concomitant]
     Active Substance: TRAMADOL
  8. AMBIEN [Concomitant]
     Active Substance: ZOLPIDEM TARTRATE
  9. PREMARIN [Concomitant]
     Active Substance: ESTROGENS, CONJUGATED
     Route: 048

REACTIONS (7)
  - Acute hepatic failure [Unknown]
  - Renal failure acute [Unknown]
  - Pancreatitis acute [Unknown]
  - Liver injury [Unknown]
  - Toxicity to various agents [Unknown]
  - Overdose [Unknown]
  - Temporomandibular joint syndrome [Unknown]

NARRATIVE: CASE EVENT DATE: 20120329
